FAERS Safety Report 7111678-6 (Version None)
Quarter: 2010Q4

REPORT INFORMATION
  Report Type: 
  Country: None (occurrence: None)
  Receive Date: 20101118
  Receipt Date: 20101102
  Transmission Date: 20110411
  Serious: Yes (Other)
  Sender: FDA-Public Use
  Company Number: JP-PFIZER INC-2010142603

PATIENT
  Age: 80 Year
  Sex: Male

DRUGS (16)
  1. MIGLITOL [Suspect]
     Indication: TYPE 2 DIABETES MELLITUS
     Dosage: 150 MG, UNK
     Route: 048
     Dates: start: 20101001, end: 20101011
  2. OMEPRAL [Concomitant]
     Dosage: 10 MG, UNK
     Route: 048
  3. MEVALOTIN [Concomitant]
     Dosage: 10 MG, UNK
     Route: 048
  4. ARTIST [Concomitant]
     Dosage: 2.5 MG, UNK
     Route: 048
  5. FERROUS CITRATE [Concomitant]
     Dosage: 50 MG, UNK
     Route: 048
  6. RENIVACE [Concomitant]
     Dosage: 2.5 MG, UNK
     Route: 048
  7. PERSELIN [Concomitant]
     Dosage: 25 MG, UNK
     Route: 048
  8. ITOROL [Concomitant]
     Dosage: 10 MG, UNK
     Route: 048
  9. SIGMART [Concomitant]
     Dosage: 2.5 MG, UNK
     Route: 048
  10. CALCIUM POLYSTYRENE SULFONATE [Concomitant]
     Route: 048
  11. LASIX [Concomitant]
     Dosage: 20 MG, UNK
     Route: 048
  12. EURODIN [Concomitant]
     Dosage: 2 MG, UNK
     Route: 048
  13. PURSENNID [Concomitant]
     Dosage: 12 MG, UNK
     Route: 048
  14. VILDAGLIPTIN [Concomitant]
     Dosage: 50 MG, UNK
     Route: 048
  15. WARFARIN [Concomitant]
     Dosage: 1 MG, UNK
     Route: 048
  16. LANTUS [Concomitant]
     Dosage: UNK
     Route: 058

REACTIONS (1)
  - HEPATIC FUNCTION ABNORMAL [None]
